FAERS Safety Report 9532862 (Version 2)
Quarter: 2013Q3

REPORT INFORMATION
  Report Type: Spontaneous
  Country: US (occurrence: US)
  Receive Date: 20130918
  Receipt Date: 20130918
  Transmission Date: 20140515
  Serious: No
  Sender: FDA-Public Use
  Company Number: US-PURDUE-USA-2011-0075347

PATIENT
  Sex: Female

DRUGS (4)
  1. BUTRANS [Suspect]
     Indication: BACK PAIN
     Dosage: 10 MCG, Q1H
     Route: 062
  2. BUTRANS [Suspect]
     Dosage: 20 MCG, Q1H
     Route: 062
     Dates: start: 20110911, end: 20110918
  3. BUTRANS [Suspect]
     Dosage: 5 MCG, Q1H
     Route: 062
  4. VICODIN [Concomitant]
     Indication: BREAKTHROUGH PAIN
     Dosage: 8 TABLET, 5/500MG DAILY

REACTIONS (4)
  - Extra dose administered [Unknown]
  - Drug ineffective [Recovered/Resolved]
  - Breakthrough pain [Recovered/Resolved]
  - Product quality issue [Unknown]
